FAERS Safety Report 6381657-5 (Version None)
Quarter: 2009Q3

REPORT INFORMATION
  Report Type: 
  Country: None (occurrence: None)
  Receive Date: 20090930
  Receipt Date: 20070514
  Transmission Date: 20100115
  Serious: Yes (Other)
  Sender: FDA-Public Use
  Company Number: PHEH2007US16357

PATIENT
  Sex: Female
  Weight: 86 kg

DRUGS (1)
  1. EXJADE [Suspect]
     Indication: HAEMOCHROMATOSIS
     Dosage: 2000 MG, QD
     Route: 048
     Dates: start: 20070324

REACTIONS (1)
  - MALAISE [None]
